FAERS Safety Report 7180252-8 (Version None)
Quarter: 2010Q4

REPORT INFORMATION
  Report Type: 
  Country: None (occurrence: None)
  Receive Date: 20101123
  Receipt Date: 20100826
  Transmission Date: 20110411
  Serious: No
  Sender: FDA-Public Use
  Company Number: 017866

PATIENT
  Sex: Female
  Weight: 63.5 kg

DRUGS (5)
  1. CIMZIA [Suspect]
     Indication: CROHN'S DISEASE
     Dosage: (400 MG 1X/4 WEEKS SUBCUTANEOUS)
     Route: 058
     Dates: start: 20100401
  2. TETANUS VACCINE [Suspect]
     Dosage: (IMMUNIZATION SHOT)
     Dates: start: 20100823
  3. PNEUMOCOCCAL VACCINE [Suspect]
     Dates: start: 20100823
  4. ASACOL [Concomitant]
  5. FOLIC ACID [Concomitant]

REACTIONS (6)
  - ABDOMINAL DISTENSION [None]
  - ASTHENIA [None]
  - DRUG INEFFECTIVE [None]
  - INJECTION SITE REACTION [None]
  - PAIN [None]
  - SWELLING [None]
